FAERS Safety Report 22149439 (Version 1)
Quarter: 2023Q1

REPORT INFORMATION
  Report Type: Spontaneous
  Country: IT (occurrence: IT)
  Receive Date: 20230329
  Receipt Date: 20230329
  Transmission Date: 20230418
  Serious: Yes (Other)
  Sender: FDA-Public Use
  Company Number: IT-STADA-271775

PATIENT
  Age: 7 Decade
  Sex: Male

DRUGS (1)
  1. PEMETREXED [Suspect]
     Active Substance: PEMETREXED
     Indication: Pleural mesothelioma malignant
     Dosage: UNK,(SIX CYCLES)
     Route: 065
     Dates: start: 202001, end: 202012

REACTIONS (3)
  - Fatigue [Unknown]
  - Erysipelas [Unknown]
  - Infection [Unknown]
